FAERS Safety Report 10567996 (Version 1)
Quarter: 2014Q4

REPORT INFORMATION
  Report Type: Spontaneous
  Country: US (occurrence: None)
  Receive Date: 20141105
  Receipt Date: 20141105
  Transmission Date: 20150529
  Serious: Yes (Life-Threatening, Hospitalization, Disabling)
  Sender: FDA-Public Use
  Company Number: None

PATIENT
  Age: 40 Year
  Sex: Male
  Weight: 85.7 kg

DRUGS (2)
  1. AZITHROMYCIN [Suspect]
     Active Substance: AZITHROMYCIN ANHYDROUS
     Indication: ATYPICAL PNEUMONIA
     Dosage: 2 PILLS X 1 DAY, THEN 1 PILL QD ORAL
     Route: 048
     Dates: start: 20141030, end: 20141031
  2. DAILY MULTIVITAMIN [Concomitant]
     Active Substance: VITAMINS

REACTIONS (6)
  - Unresponsive to stimuli [None]
  - Cyanosis [None]
  - Staring [None]
  - Feeling abnormal [None]
  - Fall [None]
  - Palpitations [None]

NARRATIVE: CASE EVENT DATE: 20141031
